FAERS Safety Report 9580269 (Version 6)
Quarter: 2015Q1

REPORT INFORMATION
  Report Type: Spontaneous
  Country: TR (occurrence: TR)
  Receive Date: 20131002
  Receipt Date: 20150114
  Transmission Date: 20150721
  Serious: Yes (Other)
  Sender: FDA-Public Use
  Company Number: TR-ABBVIE-12P-161-0916325-00

PATIENT
  Age: 22 Year
  Sex: Female

DRUGS (2)
  1. DEPAKENE [Suspect]
     Active Substance: VALPROIC ACID
     Dosage: EXTENDED RELEASE
     Route: 048
     Dates: start: 2000
  2. DEPAKENE [Suspect]
     Active Substance: VALPROIC ACID
     Indication: EPILEPSY
     Dosage: TIME TO ONSET: 11 YEARS(S); EXTENDED RELEASE
     Route: 048
     Dates: start: 2000

REACTIONS (7)
  - Mouth haemorrhage [Recovered/Resolved]
  - Dizziness [Unknown]
  - Product physical issue [Unknown]
  - Drug ineffective [Unknown]
  - Epilepsy [Recovered/Resolved]
  - Vertigo [Recovered/Resolved]
  - Nausea [Recovered/Resolved]

NARRATIVE: CASE EVENT DATE: 20110306
